FAERS Safety Report 6253726-1 (Version None)
Quarter: 2009Q2

REPORT INFORMATION
  Report Type: 
  Country: None (occurrence: None)
  Receive Date: 20090630
  Receipt Date: 20090617
  Transmission Date: 20091009
  Serious: Yes (Death)
  Sender: FDA-Public Use
  Company Number: APP200900336

PATIENT

DRUGS (1)
  1. CALCIUM GLUCONATE INJECTION        (CALCIUM GLUCONATE) [Suspect]
     Indication: CARDIO-RESPIRATORY ARREST
     Dosage: 2000 MG, ONCE

REACTIONS (3)
  - DRUG LABEL CONFUSION [None]
  - INCORRECT DOSE ADMINISTERED [None]
  - MEDICATION ERROR [None]
